FAERS Safety Report 8333411-2 (Version None)
Quarter: 2012Q2

REPORT INFORMATION
  Report Type: 
  Country: None (occurrence: None)
  Receive Date: 20120503
  Receipt Date: 20120502
  Transmission Date: 20120825
  Serious: Yes (Other)
  Sender: FDA-Public Use
  Company Number: US-PFIZER INC-2012098460

PATIENT
  Sex: Female

DRUGS (4)
  1. VISTARIL [Suspect]
  2. NEURONTIN [Suspect]
  3. PREMARIN [Suspect]
  4. EFFEXOR XR [Suspect]

REACTIONS (1)
  - DEMENTIA ALZHEIMER'S TYPE [None]
